FAERS Safety Report 10769983 (Version 2)
Quarter: 2015Q1

REPORT INFORMATION
  Report Type: Report from Study
  Country: DE (occurrence: DE)
  Receive Date: 20150206
  Receipt Date: 20150227
  Transmission Date: 20150721
  Serious: Yes (Hospitalization)
  Sender: FDA-Public Use
  Company Number: DE-BEH-2015048372

PATIENT
  Age: 82 Year
  Sex: Female
  Weight: 60 kg

DRUGS (17)
  1. PRIVIGEN [Suspect]
     Active Substance: HUMAN IMMUNOGLOBULIN G
     Route: 042
  2. PRIVIGEN [Suspect]
     Active Substance: HUMAN IMMUNOGLOBULIN G
     Dosage: INFUSION DURATION 60 - 90 MIN; NO FURTHER INFORMATION AVAILABLE
     Route: 042
     Dates: start: 20140721
  3. DECRISTOL [Concomitant]
  4. PRIVIGEN [Suspect]
     Active Substance: HUMAN IMMUNOGLOBULIN G
     Dosage: INFUSION DURATION 60 - 90 MIN; NO FURTHER INFORMATION AVAILABLE
     Route: 042
     Dates: start: 20140828
  5. TARGIN [Concomitant]
     Active Substance: NALOXONE HYDROCHLORIDE\OXYCODONE HYDROCHLORIDE
     Dosage: 10/5 MG 1-0-0
  6. ASPIRIN. [Concomitant]
     Active Substance: ASPIRIN
     Dosage: 1-0-0
  7. PRIVIGEN [Suspect]
     Active Substance: HUMAN IMMUNOGLOBULIN G
     Dosage: INFUSION DURATION 60 - 90 MIN; NO FURTHER INFORMATION AVAILABLE
     Route: 042
     Dates: start: 20140526
  8. PRIVIGEN [Suspect]
     Active Substance: HUMAN IMMUNOGLOBULIN G
     Dosage: INFUSION DURATION 60 - 90 MIN; NO FURTHER INFORMATION AVAILABLE
     Route: 042
     Dates: start: 20140623
  9. NEBIVOLOL [Concomitant]
     Active Substance: NEBIVOLOL
     Dosage: 1/2-0-1/2
  10. ALENDRONIC ACID [Concomitant]
     Active Substance: ALENDRONIC ACID
     Dosage: EVERY SUNDAY
  11. PANTOZOL [Concomitant]
     Active Substance: PANTOPRAZOLE SODIUM
  12. PRIVIGEN [Suspect]
     Active Substance: HUMAN IMMUNOGLOBULIN G
     Indication: SECONDARY IMMUNODEFICIENCY
     Route: 042
  13. PRIVIGEN [Suspect]
     Active Substance: HUMAN IMMUNOGLOBULIN G
     Dosage: INFUSION DURATION 60 - 90 MIN; NO FURTHER INFORMATION AVAILABLE
     Route: 042
     Dates: start: 20140428
  14. PRIVIGEN [Suspect]
     Active Substance: HUMAN IMMUNOGLOBULIN G
     Dosage: INFUSION DURATION 60 - 90 MIN; NO FURTHER INFORMATION AVAILABLE
     Route: 042
     Dates: start: 20140331
  15. LISINOPRIL. [Concomitant]
     Active Substance: LISINOPRIL
     Dosage: 0-1-0
  16. SYMBICORT [Concomitant]
     Active Substance: BUDESONIDE\FORMOTEROL FUMARATE DIHYDRATE
     Dosage: 160/4.5
  17. MIRTAZAPIN [Concomitant]
     Active Substance: MIRTAZAPINE
     Dosage: 0-0-1/2

REACTIONS (28)
  - Pollakiuria [Recovered/Resolved]
  - General physical health deterioration [Recovered/Resolved]
  - Cachexia [Recovered/Resolved]
  - Diarrhoea [Recovered/Resolved]
  - Bronchopneumonia [Recovered/Resolved]
  - Hypokalaemia [Recovered/Resolved]
  - Dizziness [Recovered/Resolved]
  - Escherichia infection [Recovered/Resolved]
  - Oedema peripheral [Recovered/Resolved]
  - Fatigue [Recovered/Resolved]
  - Tachypnoea [Recovering/Resolving]
  - Wheezing [Recovered/Resolved]
  - Febrile infection [Recovered/Resolved]
  - Hyponatraemia [Recovered/Resolved]
  - Decreased appetite [Recovering/Resolving]
  - Productive cough [Recovered/Resolved]
  - Leukocyturia [Recovered/Resolved]
  - Bacteriuria [Recovered/Resolved]
  - Acute kidney injury [Recovered/Resolved]
  - Bronchitis bacterial [Recovered/Resolved]
  - Urinary tract infection [Recovered/Resolved]
  - Hypoalbuminaemia [Recovered/Resolved]
  - Sepsis [Recovered/Resolved]
  - Dysuria [Recovered/Resolved]
  - Weight decreased [Recovering/Resolving]
  - Renal function test abnormal [Recovered/Resolved]
  - Asthenia [Recovered/Resolved]
  - Pyrexia [Recovered/Resolved]

NARRATIVE: CASE EVENT DATE: 201408
